FAERS Safety Report 15942341 (Version 2)
Quarter: 2019Q1

REPORT INFORMATION
  Report Type: Spontaneous
  Country: US (occurrence: US)
  Receive Date: 20190209
  Receipt Date: 20190215
  Transmission Date: 20190417
  Serious: Yes (Other)
  Sender: FDA-Public Use
  Company Number: US-ASTRAZENECA-2018SF64597

PATIENT
  Age: 19927 Day

DRUGS (21)
  1. NEXIUM [Suspect]
     Active Substance: ESOMEPRAZOLE MAGNESIUM
     Route: 048
     Dates: start: 20171211
  2. MAGNESIUM OXIDE. [Concomitant]
     Active Substance: MAGNESIUM OXIDE
  3. ARAVA [Concomitant]
     Active Substance: LEFLUNOMIDE
  4. PROTONIX [Suspect]
     Active Substance: PANTOPRAZOLE SODIUM
     Route: 065
     Dates: start: 20171211
  5. PREDNISONE. [Concomitant]
     Active Substance: PREDNISONE
  6. NIFEDIPINE. [Concomitant]
     Active Substance: NIFEDIPINE
  7. NEXIUM 24HR [Suspect]
     Active Substance: ESOMEPRAZOLE MAGNESIUM
     Route: 048
     Dates: start: 20190104
  8. BYSTOLIC [Concomitant]
     Active Substance: NEBIVOLOL HYDROCHLORIDE
  9. DEXILANT [Suspect]
     Active Substance: DEXLANSOPRAZOLE
     Route: 065
     Dates: start: 20120101, end: 20181031
  10. LASIX [Concomitant]
     Active Substance: FUROSEMIDE
  11. HUMIRA [Concomitant]
     Active Substance: ADALIMUMAB
  12. NEXIUM [Suspect]
     Active Substance: ESOMEPRAZOLE MAGNESIUM
     Route: 048
     Dates: start: 20120101, end: 20181031
  13. HYDRALAZINE [Concomitant]
     Active Substance: HYDRALAZINE HYDROCHLORIDE
  14. ZOCOR [Concomitant]
     Active Substance: SIMVASTATIN
  15. VIAGRA [Concomitant]
     Active Substance: SILDENAFIL CITRATE
  16. COLACE [Concomitant]
     Active Substance: DOCUSATE SODIUM
  17. TAMIFLU [Concomitant]
     Active Substance: OSELTAMIVIR PHOSPHATE
  18. PROTONIX [Suspect]
     Active Substance: PANTOPRAZOLE SODIUM
     Route: 065
     Dates: start: 20120101, end: 20181031
  19. FERROUS SULFATE. [Concomitant]
     Active Substance: FERROUS SULFATE
  20. NEXIUM 24HR [Suspect]
     Active Substance: ESOMEPRAZOLE MAGNESIUM
     Route: 048
     Dates: start: 20120101, end: 20181031
  21. OMEPRAZOLE. [Concomitant]
     Active Substance: OMEPRAZOLE
     Route: 065
     Dates: start: 20171211

REACTIONS (3)
  - Renal failure [Unknown]
  - End stage renal disease [Unknown]
  - Chronic kidney disease [Unknown]

NARRATIVE: CASE EVENT DATE: 20130522
